FAERS Safety Report 20545612 (Version 1)
Quarter: 2022Q1

REPORT INFORMATION
  Report Type: Spontaneous
  Country: DE (occurrence: None)
  Receive Date: 20220303
  Receipt Date: 20220303
  Transmission Date: 20220423
  Serious: Yes (Other)
  Sender: FDA-Public Use
  Company Number: 2022A081179

PATIENT
  Sex: Female
  Weight: 76 kg

DRUGS (1)
  1. DAPAGLIFLOZIN [Suspect]
     Active Substance: DAPAGLIFLOZIN
     Indication: Type 1 diabetes mellitus
     Dosage: DAILY DOSE: 5 MG MILLGRAM(S) EVERY DAYS
     Route: 048
     Dates: start: 20201127

REACTIONS (1)
  - Ketoacidosis [Recovering/Resolving]

NARRATIVE: CASE EVENT DATE: 20210505
